FAERS Safety Report 8800780 (Version 1)
Quarter: 2012Q4

REPORT INFORMATION
  Report Type: 
  Country: IT (occurrence: IT)
  Receive Date: 20120921
  Receipt Date: 20120921
  Transmission Date: 20130627
  Serious: Yes (Other)
  Sender: FDA-Public Use
  Company Number: IT-SANOFI-AVENTIS-2012SA065287

PATIENT
  Age: 67 Year
  Sex: Male

DRUGS (5)
  1. XATRAL [Suspect]
     Indication: BENIGN PROSTATIC HYPERTROPHY
     Route: 048
  2. AVODART [Concomitant]
  3. CARDIOASPIRIN [Concomitant]
  4. TORVAST [Concomitant]
     Dosage: 20 mg.
  5. DEURSIL [Concomitant]

REACTIONS (4)
  - Head injury [Recovering/Resolving]
  - Fall [Unknown]
  - Orthostatic hypotension [Recovering/Resolving]
  - Syncope [Recovering/Resolving]
